FAERS Safety Report 8319151-4 (Version None)
Quarter: 2012Q2

REPORT INFORMATION
  Report Type: 
  Country: None (occurrence: None)
  Receive Date: 20120427
  Receipt Date: 20120413
  Transmission Date: 20120825
  Serious: Yes (Hospitalization)
  Sender: FDA-Public Use
  Company Number: FR-MERCK-1204USA02242

PATIENT
  Sex: Male

DRUGS (4)
  1. PRIMAXIN [Suspect]
     Indication: STAPHYLOCOCCAL INFECTION
     Route: 042
     Dates: start: 20110701, end: 20110701
  2. NOXAFIL [Suspect]
     Indication: INFECTION PROPHYLAXIS
     Route: 048
     Dates: start: 20110701, end: 20110701
  3. PYOSTACINE [Concomitant]
     Route: 065
  4. VANCOMYCIN [Concomitant]
     Indication: STAPHYLOCOCCAL INFECTION
     Route: 065

REACTIONS (1)
  - CYTOLYTIC HEPATITIS [None]
